FAERS Safety Report 8839496 (Version 3)
Quarter: 2014Q1

REPORT INFORMATION
  Report Type: Report from Study
  Country: JP (occurrence: JP)
  Receive Date: 20121015
  Receipt Date: 20140317
  Transmission Date: 20141002
  Serious: Yes (Other)
  Sender: FDA-Public Use
  Company Number: JP-VERTEX PHARMACEUTICAL INC.-2012-022671

PATIENT
  Age: 69 Year
  Sex: Male

DRUGS (20)
  1. VX-950 (TELAPREVIR) [Suspect]
     Indication: CHRONIC HEPATITIS C
     Dosage: 1500 MG, QD
     Route: 048
     Dates: start: 20120703, end: 20120827
  2. RIBAVIRIN [Suspect]
     Indication: CHRONIC HEPATITIS C
     Dosage: 400 MG, QD
     Route: 048
     Dates: start: 20120702, end: 20120731
  3. RIBAVIRIN [Suspect]
     Dosage: 200 MG, QD
     Route: 048
     Dates: start: 20120801, end: 20120806
  4. RIBAVIRIN [Suspect]
     Dosage: 200 MG, QD
     Route: 048
     Dates: start: 20121002, end: 20121008
  5. RIBAVIRIN [Suspect]
     Dosage: 400 MG, QD
     Route: 048
     Dates: start: 20121009, end: 20121220
  6. PEGINTERFERON ALFA-2B [Suspect]
     Indication: CHRONIC HEPATITIS C
     Dosage: 0.75 ?G/KG, QW
     Route: 058
     Dates: start: 20120702
  7. PEGINTERFERON ALFA-2B [Suspect]
     Dosage: 0.8 ?G/KG, QW
     Route: 058
     Dates: start: 20120710, end: 20121001
  8. PEGINTERFERON ALFA-2B [Suspect]
     Dosage: 1.3 ?G/KG, QW
     Route: 058
     Dates: start: 20121002, end: 20121220
  9. PARIET [Suspect]
     Indication: PROPHYLAXIS
     Dosage: 10 MG, QD
     Route: 048
     Dates: start: 20120807
  10. PARIET [Suspect]
     Dosage: 10 MG, QD
  11. ALLOPURINOL [Concomitant]
     Dosage: 200 MG, QD
     Route: 048
     Dates: start: 20120703, end: 20120827
  12. ALLOPURINOL [Concomitant]
     Dosage: 200 MG, QD
     Route: 048
  13. UBIRON [Concomitant]
     Dosage: 6 DF, QD
     Route: 048
     Dates: start: 20120710, end: 20120801
  14. ALLEGRA [Concomitant]
     Dosage: 120 MG, QD
     Route: 048
     Dates: start: 20120827, end: 20120830
  15. NERISONA [Concomitant]
     Dosage: 1 TO 2 GRAM, PRN
     Route: 061
     Dates: start: 20120830, end: 20120918
  16. NERISONA [Concomitant]
     Dosage: UNK, PRN
     Route: 061
     Dates: start: 20121108, end: 20121220
  17. MYSER [Concomitant]
     Dosage: UNK
     Route: 061
     Dates: start: 20120831
  18. LOCOID [Concomitant]
     Dosage: 1 TO 2 GRAM,  PRN
     Route: 061
     Dates: start: 20120831
  19. TALION [Concomitant]
     Dosage: 20 MG, QD
     Route: 048
     Dates: start: 20120831, end: 20120905
  20. TALION [Concomitant]
     Dosage: 20MG, QD
     Route: 048
     Dates: start: 20121009, end: 20121107

REACTIONS (1)
  - Rash [Recovered/Resolved]
